FAERS Safety Report 22665206 (Version 2)
Quarter: 2024Q4

REPORT INFORMATION
  Report Type: Report from Study
  Country: US (occurrence: US)
  Receive Date: 20230703
  Receipt Date: 20241209
  Transmission Date: 20250114
  Serious: Yes (Other)
  Sender: RANBAXY
  Company Number: US-SUN PHARMACEUTICAL INDUSTRIES LTD-2023R1-393516

PATIENT
  Age: 69 Year
  Sex: Female

DRUGS (3)
  1. AMITRIPTYLINE [Suspect]
     Active Substance: AMITRIPTYLINE
     Indication: Oral dysaesthesia
     Dosage: 25 MILLIGRAM, NIGHTLY
     Route: 065
  2. GABAPENTIN [Suspect]
     Active Substance: GABAPENTIN
     Indication: Oral dysaesthesia
     Dosage: 300 MILLIGRAM, TID
     Route: 065
  3. CLONAZEPAM [Suspect]
     Active Substance: CLONAZEPAM
     Indication: Oral dysaesthesia
     Dosage: UNK (0.1 MG/ML SOLUTION 5-MIN DAILY)
     Route: 061

REACTIONS (1)
  - Drug ineffective [Unknown]
